FAERS Safety Report 21148976 (Version 3)
Quarter: 2022Q3

REPORT INFORMATION
  Report Type: Spontaneous
  Country: US (occurrence: US)
  Receive Date: 20220729
  Receipt Date: 20220824
  Transmission Date: 20221027
  Serious: No
  Sender: FDA-Public Use
  Company Number: US-JNJFOC-20220756379

PATIENT
  Age: 62 Year
  Sex: Female
  Weight: 76.272 kg

DRUGS (7)
  1. INVOKANA [Suspect]
     Active Substance: CANAGLIFLOZIN
     Indication: Diabetes mellitus
     Dosage: LESS THAN ONE YEAR
     Route: 048
  2. JANUVIA [Concomitant]
     Active Substance: SITAGLIPTIN PHOSPHATE
  3. METFORMIN [Concomitant]
     Active Substance: METFORMIN HYDROCHLORIDE
  4. ENALAPRIL [Concomitant]
     Active Substance: ENALAPRIL
  5. ADEMETIONINE [Concomitant]
     Active Substance: ADEMETIONINE
  6. KELP [IODINE] [Concomitant]
  7. LITHIUM OROTATE [Concomitant]
     Active Substance: LITHIUM OROTATE

REACTIONS (4)
  - Antipsychotic drug level below therapeutic [Recovered/Resolved]
  - Dehydration [Recovered/Resolved]
  - Restlessness [Recovered/Resolved]
  - Initial insomnia [Recovered/Resolved]

NARRATIVE: CASE EVENT DATE: 20141113
